FAERS Safety Report 14234234 (Version 1)
Quarter: 2017Q4

REPORT INFORMATION
  Report Type: Spontaneous
  Country: US (occurrence: US)
  Receive Date: 20171129
  Receipt Date: 20171129
  Transmission Date: 20180321
  Serious: No
  Sender: FDA-Public Use
  Company Number: US-JNJFOC-20171113940

PATIENT
  Age: 24 Year
  Sex: Male
  Weight: 77.11 kg

DRUGS (1)
  1. SUDAFED 12 HOUR [Suspect]
     Active Substance: PSEUDOEPHEDRINE HYDROCHLORIDE
     Indication: VIRAL INFECTION
     Dosage: AT 1:00 IN THE MORNING
     Route: 065
     Dates: start: 20171110

REACTIONS (4)
  - Product use in unapproved indication [Not Recovered/Not Resolved]
  - Eyelid margin crusting [Not Recovered/Not Resolved]
  - Eye swelling [Not Recovered/Not Resolved]
  - Off label use [Not Recovered/Not Resolved]

NARRATIVE: CASE EVENT DATE: 20171110
